FAERS Safety Report 16354839 (Version 2)
Quarter: 2019Q2

REPORT INFORMATION
  Report Type: Spontaneous
  Country: BR (occurrence: BR)
  Receive Date: 20190524
  Receipt Date: 20190610
  Transmission Date: 20190711
  Serious: Yes (Life-Threatening, Other)
  Sender: FDA-Public Use
  Company Number: BR-GE HEALTHCARE LIFE SCIENCES-2019CSU002727

PATIENT

DRUGS (7)
  1. ATROPINE. [Concomitant]
     Active Substance: ATROPINE
     Indication: SEDATION
     Dosage: 0.37 MG, UNK
     Route: 065
  2. DIAZEPAM. [Concomitant]
     Active Substance: DIAZEPAM
     Dosage: UNK, PRN (5 MG/2 ML)
  3. MIDAZOLAM [Concomitant]
     Active Substance: MIDAZOLAM HYDROCHLORIDE
     Indication: SEDATION
     Dosage: 1 MG, UNK
     Route: 065
  4. OMNISCAN [Suspect]
     Active Substance: GADODIAMIDE
     Indication: NUCLEAR MAGNETIC RESONANCE IMAGING BRAIN
     Dosage: 6 ML, SINGLE
     Route: 042
     Dates: start: 20190508, end: 20190508
  5. OMNISCAN [Suspect]
     Active Substance: GADODIAMIDE
     Indication: SEIZURE
  6. ONDANSETRON [Concomitant]
     Active Substance: ONDANSETRON
     Dosage: 2 ML (AMPOULE), PRN
  7. DIPYRONE [Concomitant]
     Active Substance: DIPYRONE
     Dosage: 2 ML (AMPOULE), PRN

REACTIONS (3)
  - Increased upper airway secretion [Recovered/Resolved]
  - Muscle spasms [Recovered/Resolved]
  - Erythema [Recovered/Resolved]

NARRATIVE: CASE EVENT DATE: 20190508
